FAERS Safety Report 24096568 (Version 1)
Quarter: 2024Q3

REPORT INFORMATION
  Report Type: Spontaneous
  Country: RO (occurrence: RO)
  Receive Date: 20240716
  Receipt Date: 20240716
  Transmission Date: 20241016
  Serious: Yes (Hospitalization)
  Sender: TAKEDA
  Company Number: RO-ALFASIGMA-2024-AER-03699

PATIENT
  Age: 43 Year

DRUGS (3)
  1. MESALAMINE [Suspect]
     Active Substance: MESALAMINE
     Indication: Colitis ulcerative
     Dosage: UNK
     Route: 065
  2. VEDOLIZUMAB [Concomitant]
     Active Substance: VEDOLIZUMAB
     Indication: Colitis ulcerative
     Dosage: 300 MILLIGRAM, Q4WEEKS
     Route: 065
     Dates: start: 202109
  3. URSODIOL [Concomitant]
     Active Substance: URSODIOL
     Indication: Cholangitis sclerosing
     Dosage: UNK
     Route: 065

REACTIONS (2)
  - Drug ineffective [Unknown]
  - Weight decreased [Recovered/Resolved]
